FAERS Safety Report 23450292 (Version 1)
Quarter: 2024Q1

REPORT INFORMATION
  Report Type: Spontaneous
  Country: US (occurrence: US)
  Receive Date: 20240129
  Receipt Date: 20240129
  Transmission Date: 20240410
  Serious: No
  Sender: FDA-Public Use
  Company Number: US-BRISTOL-MYERS SQUIBB COMPANY-2024-012039

PATIENT
  Age: 33 Year
  Sex: Female

DRUGS (4)
  1. AUGTYRO [Suspect]
     Active Substance: REPOTRECTINIB
     Indication: Non-small cell lung cancer
     Route: 048
     Dates: start: 20231229
  2. AUGTYRO [Suspect]
     Active Substance: REPOTRECTINIB
  3. METOPROLOL [Concomitant]
     Active Substance: METOPROLOL
     Indication: Product used for unknown indication
  4. LOSARTAN [Concomitant]
     Active Substance: LOSARTAN
     Indication: Product used for unknown indication

REACTIONS (5)
  - Myalgia [Unknown]
  - Motor dysfunction [Unknown]
  - Fatigue [Unknown]
  - Pain [Unknown]
  - Anxiety [Unknown]
